FAERS Safety Report 22022323 (Version 2)
Quarter: 2024Q3

REPORT INFORMATION
  Report Type: Spontaneous
  Country: RO (occurrence: RO)
  Receive Date: 20230222
  Receipt Date: 20240731
  Transmission Date: 20241016
  Serious: Yes (Other)
  Sender: MYLAN
  Company Number: RO-AMGEN-ROUSP2023015060

PATIENT
  Age: 64 Year
  Sex: Female

DRUGS (8)
  1. OXALIPLATIN [Suspect]
     Active Substance: OXALIPLATIN
     Indication: Colorectal cancer metastatic
     Dosage: UNK
     Route: 042
  2. FLUOROURACIL [Suspect]
     Active Substance: FLUOROURACIL
     Indication: Colorectal cancer metastatic
     Dosage: UNK
     Route: 042
  3. IRINOTECAN [Suspect]
     Active Substance: IRINOTECAN
     Indication: Colorectal cancer metastatic
     Dosage: UNK
     Route: 065
     Dates: end: 2021
  4. BEVACIZUMAB [Suspect]
     Active Substance: BEVACIZUMAB
     Indication: Colorectal cancer metastatic
     Dosage: UNK, DOSAGE1: UNIT=NOT AVAILABLE
     Route: 065
     Dates: end: 2021
  5. LEUCOVORIN [Suspect]
     Active Substance: LEUCOVORIN\LEUCOVORIN CALCIUM
     Indication: Colorectal cancer metastatic
     Dosage: UNK
     Route: 042
  6. VECTIBIX [Suspect]
     Active Substance: PANITUMUMAB
     Indication: Colorectal cancer metastatic
     Dosage: UNK, DOSAGE1: UNIT=NOT AVAILABLE
     Route: 042
     Dates: start: 2019
  7. VECTIBIX [Suspect]
     Active Substance: PANITUMUMAB
     Dosage: UNK, DOSAGE2: UNIT=NOT AVAILABLE
     Route: 042
     Dates: start: 2021
  8. VECTIBIX [Suspect]
     Active Substance: PANITUMUMAB
     Dosage: K (25% DOSE REDUCTION), DOSAGE3: UNIT=NOT AVB
     Route: 042
     Dates: start: 2020

REACTIONS (7)
  - Colorectal cancer metastatic [Unknown]
  - Neuropathy peripheral [Unknown]
  - Polyneuropathy [Unknown]
  - Diarrhoea [Unknown]
  - Stomatitis [Unknown]
  - Nausea [Unknown]
  - Rash [Unknown]

NARRATIVE: CASE EVENT DATE: 20190101
